FAERS Safety Report 6871658-2 (Version None)
Quarter: 2010Q3

REPORT INFORMATION
  Report Type: 
  Country: None (occurrence: None)
  Receive Date: 20100723
  Receipt Date: 20100713
  Transmission Date: 20110219
  Serious: Yes (Hospitalization)
  Sender: FDA-Public Use
  Company Number: GXKR2010GB07707

PATIENT
  Age: 24 Year
  Sex: Female

DRUGS (4)
  1. TRIMETHOPRIM (NGX) [Suspect]
     Route: 065
  2. DICLOFENAC SODIUM [Suspect]
     Route: 065
  3. PARACETAMOL [Concomitant]
     Route: 065
  4. TRAMADOL HCL [Concomitant]
     Route: 065

REACTIONS (14)
  - ABDOMINAL PAIN [None]
  - AREFLEXIA [None]
  - BLOOD SODIUM DECREASED [None]
  - CHROMATURIA [None]
  - CIRCULATORY COLLAPSE [None]
  - CONFUSIONAL STATE [None]
  - CONVULSION [None]
  - DEHYDRATION [None]
  - HYPOTENSION [None]
  - INAPPROPRIATE ANTIDIURETIC HORMONE SECRETION [None]
  - LIBIDO DISORDER [None]
  - PORPHYRIA ACUTE [None]
  - TACHYCARDIA [None]
  - URINARY INCONTINENCE [None]
